FAERS Safety Report 9987962 (Version 2)
Quarter: 2014Q1

REPORT INFORMATION
  Report Type: Spontaneous
  Country: US (occurrence: US)
  Receive Date: 20140307
  Receipt Date: 20140307
  Transmission Date: 20141002
  Serious: Yes (Life-Threatening, Hospitalization, Other)
  Sender: FDA-Public Use
  Company Number: US-RB-061015-13

PATIENT
  Age: 60 Year
  Sex: Female

DRUGS (6)
  1. SUBOXONE FILM [Suspect]
     Indication: DRUG DEPENDENCE
     Dosage: SUBOXONE FILM
     Route: 060
     Dates: start: 20130228, end: 201310
  2. SUBOXONE FILM [Suspect]
     Indication: PAIN
     Dosage: SUBOXONE FILM; DOSING DETAILS UNKNOWN
     Route: 060
     Dates: start: 201310, end: 20131116
  3. SUBOXONE FILM [Suspect]
     Dosage: SUBOXONE FILM; SELF TAPERING
     Route: 060
     Dates: start: 20131117
  4. VALIUM [Concomitant]
     Indication: PANIC DISORDER
     Dosage: DOSING DETAILS UNKNOWN (AS NEEDED)
     Route: 048
  5. VALIUM [Concomitant]
     Indication: ANXIETY
     Dosage: DOSING DETAILS UNKNOWN (AS NEEDED)
     Route: 048
  6. VIBRIDE [Concomitant]
     Indication: DEPRESSION
     Dosage: DOSING DETAILS UNKNOWN
     Route: 048

REACTIONS (15)
  - Unevaluable event [Recovered/Resolved]
  - Hypertension [Unknown]
  - Uterine mass [Unknown]
  - Obstructive airways disorder [Recovered/Resolved]
  - Dyspnoea [Unknown]
  - Asthma [Not Recovered/Not Resolved]
  - Renal disorder [Not Recovered/Not Resolved]
  - Oral candidiasis [Recovered/Resolved]
  - Dysphagia [Recovered/Resolved]
  - Suicide attempt [Recovered/Resolved]
  - Overdose [Recovered/Resolved]
  - Intentional underdose [Not Recovered/Not Resolved]
  - Substance abuse [Not Recovered/Not Resolved]
  - Wrong technique in drug usage process [Not Recovered/Not Resolved]
  - Drug withdrawal syndrome [Unknown]
